FAERS Safety Report 7366028-7 (Version None)
Quarter: 2011Q1

REPORT INFORMATION
  Report Type: 
  Country: None (occurrence: None)
  Receive Date: 20110225
  Receipt Date: 20110121
  Transmission Date: 20110831
  Serious: No
  Sender: FDA-Public Use
  Company Number: 322154

PATIENT
  Age: 39 Year
  Sex: Female

DRUGS (1)
  1. VICTOZA [Suspect]
     Indication: INSULIN RESISTANT DIABETES
     Dosage: 1.8 MG, QD, SUBCUTANEOUS
     Route: 058

REACTIONS (3)
  - DRUG INEFFECTIVE [None]
  - INJECTION SITE REACTION [None]
  - INJECTION SITE EXTRAVASATION [None]
